FAERS Safety Report 4947634-3 (Version None)
Quarter: 2006Q1

REPORT INFORMATION
  Report Type: 
  Country: None (occurrence: None)
  Receive Date: 20060314
  Receipt Date: 20060302
  Transmission Date: 20060701
  Serious: Yes (Hospitalization)
  Sender: FDA-Public Use
  Company Number: 221580

PATIENT
  Age: 73 Year
  Sex: Male
  Weight: 63.9 kg

DRUGS (11)
  1. AVASTIN [Suspect]
     Indication: COLON CANCER
     Dosage: 5 MG/KG, INTRAVENOUS
     Route: 042
     Dates: start: 20051019, end: 20060104
  2. OXALIPLATIN (OXALIPLATIN) [Suspect]
     Indication: COLON CANCER
     Dosage: 85 MG/M2, INTRAVENOUS
     Route: 042
     Dates: start: 20051019, end: 20060104
  3. ACTOS [Concomitant]
  4. LEUCOVORIN CALCIUM [Suspect]
     Indication: COLON CANCER
     Dosage: 400 MG/M2, INTRAVENOUS
     Route: 042
     Dates: start: 20051019, end: 20060104
  5. FLUOROURACIL [Suspect]
     Indication: COLON CANCER
     Dosage: 400 MG/M2, INTRAVENOUS
     Route: 042
     Dates: start: 20051019, end: 20060104
  6. COMPAZINE [Concomitant]
  7. GLIPIZIDE [Concomitant]
  8. LOMOTIL [Concomitant]
  9. LOPRESSOR [Concomitant]
  10. RITALIN [Concomitant]
  11. ACETAMINOPHEN [Concomitant]

REACTIONS (4)
  - DEHYDRATION [None]
  - HYPOKALAEMIA [None]
  - PULMONARY EMBOLISM [None]
  - RENAL FAILURE ACUTE [None]
